FAERS Safety Report 18993136 (Version 9)
Quarter: 2022Q1

REPORT INFORMATION
  Report Type: Report from Study
  Country: US (occurrence: US)
  Receive Date: 20210310
  Receipt Date: 20220221
  Transmission Date: 20220424
  Serious: Yes (Hospitalization, Other)
  Sender: FDA-Public Use
  Company Number: US-NOVARTISPH-NVSC2021US054883

PATIENT
  Age: 83 Year
  Sex: Female

DRUGS (6)
  1. ENTRESTO [Suspect]
     Active Substance: SACUBITRIL\VALSARTAN
     Indication: Cardiac failure
     Dosage: 1 DF, BID (97/103 MG)
     Route: 048
     Dates: start: 202101
  2. HYDRALAZINE [Suspect]
     Active Substance: HYDRALAZINE HYDROCHLORIDE
     Indication: Product used for unknown indication
     Dosage: 25 MG, PRN (AS NEEDED)
     Route: 065
  3. COREG [Suspect]
     Active Substance: CARVEDILOL
     Indication: Product used for unknown indication
     Dosage: UNK
     Route: 065
  4. SYNTHROID [Suspect]
     Active Substance: LEVOTHYROXINE SODIUM
     Indication: Product used for unknown indication
     Dosage: UNK
     Route: 065
  5. WARFARIN [Suspect]
     Active Substance: WARFARIN
     Indication: Product used for unknown indication
     Dosage: UNK
     Route: 065
  6. COUMADIN [Concomitant]
     Active Substance: WARFARIN SODIUM
     Indication: Product used for unknown indication
     Dosage: UNK
     Route: 065

REACTIONS (17)
  - Urinary tract infection [Unknown]
  - Cardiac arrest [Unknown]
  - Cystitis [Unknown]
  - Anxiety [Unknown]
  - Malaise [Unknown]
  - Weight decreased [Unknown]
  - Depression [Unknown]
  - Memory impairment [Unknown]
  - Mood altered [Unknown]
  - Blood sodium decreased [Unknown]
  - Dyspnoea exertional [Not Recovered/Not Resolved]
  - Aortic valve stenosis [Unknown]
  - Asthenia [Unknown]
  - Hypotension [Unknown]
  - Hypertension [Unknown]
  - Product availability issue [Unknown]
  - Inappropriate schedule of product administration [Unknown]

NARRATIVE: CASE EVENT DATE: 20210901
